FAERS Safety Report 18550487 (Version 2)
Quarter: 2021Q3

REPORT INFORMATION
  Report Type: Spontaneous
  Country: US (occurrence: US)
  Receive Date: 20201126
  Receipt Date: 20210827
  Transmission Date: 20211014
  Serious: Yes (Other)
  Sender: FDA-Public Use
  Company Number: US-PFIZER INC-2020304437

PATIENT
  Age: 71 Year
  Sex: Female
  Weight: 112.94 kg

DRUGS (2)
  1. IBRANCE [Suspect]
     Active Substance: PALBOCICLIB
     Dosage: 75 MG
  2. IBRANCE [Suspect]
     Active Substance: PALBOCICLIB
     Indication: BREAST CANCER FEMALE
     Dosage: 125 MG, CYCLIC (21 DAYS ON AND 7 DAYS OFF)
     Route: 048
     Dates: start: 20200512

REACTIONS (5)
  - Product dispensing error [Unknown]
  - Intentional product misuse [Unknown]
  - Neoplasm progression [Unknown]
  - Agranulocytosis [Unknown]
  - Anxiety [Unknown]

NARRATIVE: CASE EVENT DATE: 2020
